FAERS Safety Report 9225695 (Version 1)
Quarter: 2013Q1

REPORT INFORMATION
  Report Type: Spontaneous
  Country: US (occurrence: None)
  Receive Date: 20120912
  Receipt Date: 20120912
  Transmission Date: 20140127
  Serious: No
  Sender: FDA-Public Use
  Company Number: 2012SP034504

PATIENT
  Age: 54 Year
  Sex: Female

DRUGS (3)
  1. VICTRELIS 200 MG [Suspect]
     Indication: HEPATITIS C
     Route: 048
     Dates: start: 201203
  2. RIBASPHERE [Suspect]
  3. PEGASYS [Suspect]
     Indication: PRODUCT USED FOR UNKNOWN INDICATION

REACTIONS (1)
  - Malaise [None]
